FAERS Safety Report 15778166 (Version 2)
Quarter: 2019Q1

REPORT INFORMATION
  Report Type: Spontaneous
  Country: JP (occurrence: JP)
  Receive Date: 20181231
  Receipt Date: 20190213
  Transmission Date: 20190417
  Serious: Yes (Hospitalization)
  Sender: FDA-Public Use
  Company Number: JP-CELGENEUS-JPN-20181207800

PATIENT
  Age: 74 Year
  Sex: Male
  Weight: 51 kg

DRUGS (12)
  1. CEFAZOLIN [Concomitant]
     Active Substance: CEFAZOLIN
     Indication: INFECTION PROPHYLAXIS
     Dosage: 1 GRAM
     Route: 041
     Dates: start: 20181214, end: 20181216
  2. DARATUMUMAB [Suspect]
     Active Substance: DARATUMUMAB
     Indication: PLASMA CELL MYELOMA
     Dosage: 816 MILLIGRAM
     Route: 041
     Dates: start: 20150527
  3. DEXAMETHASONE ORAL [Suspect]
     Active Substance: DEXAMETHASONE
     Indication: PLASMA CELL MYELOMA
     Dosage: 20 - 40MG
     Route: 048
     Dates: start: 20150527
  4. ZOLEDRONIC ACID MONOHYDRATE [Concomitant]
     Active Substance: ZOLEDRONIC ACID
     Indication: PRODUCT USED FOR UNKNOWN INDICATION
     Route: 065
  5. REVLIMID [Suspect]
     Active Substance: LENALIDOMIDE
     Indication: PLASMA CELL MYELOMA
     Dosage: 10 MILLIGRAM
     Route: 048
     Dates: start: 20150527
  6. HEPARIN SODIUM. [Concomitant]
     Active Substance: HEPARIN SODIUM
     Indication: THROMBOSIS PROPHYLAXIS
     Dosage: 2 VIAL
     Route: 041
     Dates: start: 20181214, end: 20181215
  7. BENZETHONIUM CHLORIDE [Concomitant]
     Active Substance: BENZETHONIUM CHLORIDE
     Indication: INFECTION PROPHYLAXIS
     Dosage: 120 MILLILITER
     Route: 065
     Dates: start: 20181215, end: 20181222
  8. LOXOPROFEN SODIUM [Concomitant]
     Active Substance: LOXOPROFEN SODIUM
     Indication: NEURALGIA
     Dosage: 60 MILLIGRAM
     Route: 048
     Dates: start: 20180919
  9. REVLIMID [Suspect]
     Active Substance: LENALIDOMIDE
     Dosage: 10 MILLIGRAM
     Route: 048
     Dates: start: 20181129
  10. DEXAMETHASONE ORAL [Suspect]
     Active Substance: DEXAMETHASONE
     Dosage: 20 - 40MG
     Route: 048
     Dates: start: 20181207
  11. DARATUMUMAB [Suspect]
     Active Substance: DARATUMUMAB
     Dosage: 816 MILLIGRAM
     Route: 041
     Dates: start: 20181207
  12. LEVOFLOXACIN HEMIHYDRATE [Concomitant]
     Active Substance: LEVOFLOXACIN
     Indication: OSTEONECROSIS OF JAW
     Dosage: 500 MILLIGRAM
     Route: 048
     Dates: start: 20180119

REACTIONS (1)
  - Osteonecrosis of jaw [Recovered/Resolved]

NARRATIVE: CASE EVENT DATE: 20181213
